FAERS Safety Report 4841172-4 (Version None)
Quarter: 2005Q4

REPORT INFORMATION
  Report Type: 
  Country: None (occurrence: None)
  Receive Date: 20051130
  Receipt Date: 20051021
  Transmission Date: 20060501
  Serious: No
  Sender: FDA-Public Use
  Company Number: US-BRISTOL-MYERS SQUIBB COMPANY-13154018

PATIENT
  Age: 58 Year
  Sex: Male
  Weight: 77 kg

DRUGS (2)
  1. ABILIFY [Suspect]
     Indication: PSYCHOTIC DISORDER
     Route: 048
  2. ANTIVIRAL [Concomitant]

REACTIONS (1)
  - ANGINA PECTORIS [None]
